APPROVED DRUG PRODUCT: METHYLPHENIDATE HYDROCHLORIDE
Active Ingredient: METHYLPHENIDATE HYDROCHLORIDE
Strength: 60MG
Dosage Form/Route: CAPSULE, EXTENDED RELEASE;ORAL
Application: A208861 | Product #007 | TE Code: AB3
Applicant: ACTAVIS ELIZABETH LLC
Approved: Dec 13, 2018 | RLD: No | RS: No | Type: RX